FAERS Safety Report 22027365 (Version 1)
Quarter: 2023Q1

REPORT INFORMATION
  Report Type: Spontaneous
  Country: US (occurrence: None)
  Receive Date: 20230223
  Receipt Date: 20230223
  Transmission Date: 20230417
  Serious: No
  Sender: FDA-Public Use
  Company Number: US-ROCHE-3221987

PATIENT
  Sex: Female
  Weight: 161.5 kg

DRUGS (51)
  1. XOLAIR [Suspect]
     Active Substance: OMALIZUMAB
     Indication: Idiopathic urticaria
     Route: 058
     Dates: start: 20220124
  2. XOLAIR [Suspect]
     Active Substance: OMALIZUMAB
  3. MONODOX (UNITED STATES) [Concomitant]
     Route: 048
  4. XALATAN [Concomitant]
     Active Substance: LATANOPROST
  5. CRESTOR [Concomitant]
     Active Substance: ROSUVASTATIN CALCIUM
     Route: 048
  6. PEPCID [Concomitant]
     Active Substance: FAMOTIDINE
     Route: 048
  7. DESYREL [Concomitant]
     Active Substance: TRAZODONE HYDROCHLORIDE
  8. HIBICLENS [Concomitant]
     Active Substance: CHLORHEXIDINE GLUCONATE
  9. SYNTHROID [Concomitant]
     Active Substance: LEVOTHYROXINE SODIUM
     Route: 048
  10. CLEOCIN-T [Concomitant]
  11. NIZORAL [Concomitant]
     Active Substance: KETOCONAZOLE
  12. MAGOX [Concomitant]
     Route: 048
  13. NASONEX [Concomitant]
     Active Substance: MOMETASONE FUROATE
  14. TERCONAZOLE [Concomitant]
     Active Substance: TERCONAZOLE
     Route: 067
  15. MYRBETRIQ [Concomitant]
     Active Substance: MIRABEGRON
     Route: 048
  16. VICTOZA [Concomitant]
     Active Substance: LIRAGLUTIDE
     Route: 058
  17. TRESIBA [Concomitant]
     Active Substance: INSULIN DEGLUDEC
  18. COLACE [Concomitant]
     Active Substance: DOCUSATE SODIUM
     Route: 048
  19. PROVENTIL HFA [Concomitant]
     Active Substance: ALBUTEROL SULFATE
     Dosage: 2 PUFFS
     Route: 055
  20. VRAYLAR [Concomitant]
     Active Substance: CARIPRAZINE
  21. WELLBUTRIN XL [Concomitant]
     Active Substance: BUPROPION HYDROCHLORIDE
     Route: 048
  22. DEPAKOTE [Concomitant]
     Active Substance: DIVALPROEX SODIUM
     Route: 048
  23. EPIPEN [Concomitant]
     Active Substance: EPINEPHRINE
     Route: 030
  24. FENUGREEK SEED [Concomitant]
     Active Substance: FENUGREEK SEED
     Route: 048
  25. OLOPATADINE [Concomitant]
     Active Substance: OLOPATADINE
  26. METROGEL [Concomitant]
     Active Substance: METRONIDAZOLE
     Route: 067
  27. REFRESH TEARS [Concomitant]
     Active Substance: CARBOXYMETHYLCELLULOSE SODIUM
  28. MIRALAX [Concomitant]
     Active Substance: POLYETHYLENE GLYCOL 3350
  29. VITAMIN C [Concomitant]
     Active Substance: ASCORBIC ACID
     Route: 048
  30. FISH OIL [Concomitant]
     Active Substance: FISH OIL
  31. ZINC [Concomitant]
     Active Substance: ZINC
     Route: 048
  32. IRON [Concomitant]
     Active Substance: IRON
     Route: 048
  33. D-MANNOSE [Concomitant]
     Route: 048
  34. KLONOPIN [Concomitant]
     Active Substance: CLONAZEPAM
     Route: 048
  35. ZOLOFT [Concomitant]
     Active Substance: SERTRALINE HYDROCHLORIDE
     Route: 048
  36. ASTELIN [Concomitant]
     Active Substance: AZELASTINE HYDROCHLORIDE
     Route: 045
  37. ZOFRAN [Concomitant]
     Active Substance: ONDANSETRON HYDROCHLORIDE
     Route: 048
  38. TIGAN [Concomitant]
     Active Substance: TRIMETHOBENZAMIDE HYDROCHLORIDE
     Route: 048
  39. KENALOG [Concomitant]
     Active Substance: TRIAMCINOLONE ACETONIDE
  40. LOTRIMIN CREAM [Concomitant]
  41. MUCINEX [Concomitant]
     Active Substance: GUAIFENESIN
     Route: 048
  42. LAC-HYDRIN [Concomitant]
     Active Substance: AMMONIUM LACTATE
     Route: 048
  43. ANECREAM [Concomitant]
     Active Substance: LIDOCAINE
  44. TURMERIC [Concomitant]
     Active Substance: TURMERIC
     Route: 048
  45. OMEGA-3 FATTY ACIDS [Concomitant]
     Active Substance: OMEGA-3 FATTY ACIDS
     Route: 048
  46. CETIRIZINE HYDROCHLORIDE [Concomitant]
     Active Substance: CETIRIZINE HYDROCHLORIDE
     Route: 048
  47. VITAMIN D3 [Concomitant]
     Active Substance: CHOLECALCIFEROL
     Dosage: 1000 UNITS
     Route: 048
  48. CRANBERRY JUICE [Concomitant]
     Active Substance: CRANBERRY JUICE
     Route: 048
  49. GINGER [Concomitant]
     Active Substance: GINGER
     Route: 048
  50. SPECTAZOLE [Concomitant]
     Active Substance: ECONAZOLE NITRATE
     Route: 061
  51. FLAXSEED [Concomitant]
     Active Substance: FLAX SEED

REACTIONS (10)
  - Hypersensitivity [Unknown]
  - Paraesthesia [Unknown]
  - Lip swelling [Unknown]
  - Speech disorder [Unknown]
  - Cough [Unknown]
  - Throat tightness [Unknown]
  - Urticaria [Unknown]
  - Pruritus [Unknown]
  - Insomnia [Unknown]
  - Dyspnoea [Unknown]
